FAERS Safety Report 7547337-5 (Version None)
Quarter: 2011Q2

REPORT INFORMATION
  Report Type: 
  Country: None (occurrence: None)
  Receive Date: 20110614
  Receipt Date: 20110606
  Transmission Date: 20111010
  Serious: Yes (Hospitalization)
  Sender: FDA-Public Use
  Company Number: US-US-EMD SERONO, INC.-7050513

PATIENT
  Sex: Female

DRUGS (4)
  1. ASPIRIN [Concomitant]
     Dates: start: 20110501
  2. ASPIRIN [Concomitant]
     Dates: end: 20110201
  3. REBIF [Suspect]
     Route: 058
  4. REBIF [Suspect]
     Indication: PRODUCT USED FOR UNKNOWN INDICATION
     Route: 058
     Dates: start: 20110221

REACTIONS (4)
  - FALL [None]
  - TRANSIENT ISCHAEMIC ATTACK [None]
  - GASTROINTESTINAL INFECTION [None]
  - URINARY TRACT INFECTION [None]
